FAERS Safety Report 9994560 (Version 1)
Quarter: 2014Q1

REPORT INFORMATION
  Report Type: Spontaneous
  Country: GB (occurrence: GB)
  Receive Date: 20140311
  Receipt Date: 20140311
  Transmission Date: 20141002
  Serious: Yes (Hospitalization)
  Sender: FDA-Public Use
  Company Number: GB-PFIZER INC-2014061716

PATIENT
  Age: 42 Year
  Sex: Male
  Weight: 95 kg

DRUGS (3)
  1. SULFASALAZINE [Suspect]
     Indication: ARTHRITIS REACTIVE
     Dosage: 1 G, 2X/DAY
     Route: 048
     Dates: start: 19900101, end: 19920101
  2. TINZAPARIN [Concomitant]
     Dosage: UNK
  3. WARFARIN [Concomitant]
     Dosage: UNK

REACTIONS (1)
  - Pulmonary embolism [Not Recovered/Not Resolved]
